FAERS Safety Report 4411468-9 (Version None)
Quarter: 2004Q2

REPORT INFORMATION
  Report Type: 
  Country: None (occurrence: None)
  Receive Date: 20040630
  Receipt Date: 20040526
  Transmission Date: 20050107
  Serious: No
  Sender: FDA-Public Use
  Company Number: 04P-163-0262056-00

PATIENT
  Age: 59 Year
  Sex: Female
  Weight: 48.9885 kg

DRUGS (4)
  1. HUMIRA [Suspect]
     Indication: RHEUMATOID ARTHRITIS
     Dosage: 40 MG, 1 IN 2 WK, SUBCUTANEOUS
     Route: 058
     Dates: start: 20040430
  2. VICODIN [Concomitant]
  3. ASPIRIN [Concomitant]
  4. DOCUSATE SODIUM [Concomitant]

REACTIONS (3)
  - FATIGUE [None]
  - HOARSENESS [None]
  - NASAL DISCOMFORT [None]
